FAERS Safety Report 5704939-6 (Version None)
Quarter: 2008Q2

REPORT INFORMATION
  Report Type: 
  Country: None (occurrence: None)
  Receive Date: 20080414
  Receipt Date: 20080317
  Transmission Date: 20081010
  Serious: No
  Sender: FDA-Public Use
  Company Number: US-BOEHRINGER INGELHEIM GMBH, GERMANY-2008-BP-04007BP

PATIENT
  Sex: Female

DRUGS (7)
  1. AGGRENOX [Suspect]
     Indication: AMNESIA
     Route: 048
     Dates: start: 20080201
  2. AGGRENOX [Suspect]
     Indication: TRANSIENT ISCHAEMIC ATTACK
  3. AGGRENOX [Suspect]
     Indication: FEELING ABNORMAL
  4. CYMBALTA [Concomitant]
  5. TIMOLEL [Concomitant]
  6. ZETIA [Concomitant]
  7. FIORINAL [Concomitant]
     Indication: HEADACHE

REACTIONS (2)
  - HEADACHE [None]
  - HYPOKINESIA [None]
